FAERS Safety Report 5520422-5 (Version None)
Quarter: 2007Q4

REPORT INFORMATION
  Report Type: 
  Country: None (occurrence: None)
  Receive Date: 20071119
  Receipt Date: 20071106
  Transmission Date: 20080405
  Serious: Yes (Hospitalization, Other)
  Sender: FDA-Public Use
  Company Number: US-PFIZER INC-2005139826

PATIENT
  Sex: Male
  Weight: 151.5 kg

DRUGS (1)
  1. CELEBREX [Suspect]
     Indication: ARTHRITIS
     Route: 048
     Dates: start: 20050101, end: 20050701

REACTIONS (5)
  - CEREBROVASCULAR ACCIDENT [None]
  - DIABETES MELLITUS [None]
  - HAEMOPTYSIS [None]
  - SKIN DISCOLOURATION [None]
  - WEIGHT DECREASED [None]
